FAERS Safety Report 7610040-7 (Version None)
Quarter: 2011Q3

REPORT INFORMATION
  Report Type: 
  Country: None (occurrence: None)
  Receive Date: 20110714
  Receipt Date: 20110707
  Transmission Date: 20111222
  Serious: Yes (Other)
  Sender: FDA-Public Use
  Company Number: AU-BRISTOL-MYERS SQUIBB COMPANY-15839517

PATIENT
  Age: 60 Year
  Sex: Male

DRUGS (1)
  1. ENTECAVIR [Suspect]
     Indication: HEPATITIS B

REACTIONS (5)
  - MEMORY IMPAIRMENT [None]
  - ATAXIA [None]
  - RENAL IMPAIRMENT [None]
  - PARKINSON'S DISEASE [None]
  - CEREBELLAR SYNDROME [None]
